FAERS Safety Report 5530558-0 (Version None)
Quarter: 2007Q4

REPORT INFORMATION
  Report Type: 
  Country: None (occurrence: None)
  Receive Date: 20071130
  Receipt Date: 20071126
  Transmission Date: 20080405
  Serious: Yes (Other)
  Sender: FDA-Public Use
  Company Number: US-JNJFOC-20071000598

PATIENT
  Sex: Female
  Weight: 45.81 kg

DRUGS (2)
  1. TOPAMAX [Suspect]
     Indication: BULIMIA NERVOSA
     Route: 048
  2. TOPAMAX [Suspect]
     Indication: MIGRAINE
     Route: 048

REACTIONS (7)
  - DIARRHOEA [None]
  - DISORIENTATION [None]
  - DIZZINESS [None]
  - MUSCULOSKELETAL STIFFNESS [None]
  - OPHTHALMOPLEGIA [None]
  - SWELLING [None]
  - VOMITING [None]
